FAERS Safety Report 12540905 (Version 2)
Quarter: 2016Q3

REPORT INFORMATION
  Report Type: Report from Study
  Country: BR (occurrence: BR)
  Receive Date: 20160708
  Receipt Date: 20160715
  Transmission Date: 20161109
  Serious: Yes (Other)
  Sender: FDA-Public Use
  Company Number: BR-ROCHE-1161805

PATIENT
  Age: 70 Year
  Sex: Male
  Weight: 79 kg

DRUGS (57)
  1. RITUXIMAB [Suspect]
     Active Substance: RITUXIMAB
     Indication: NON-HODGKIN^S LYMPHOMA UNSPECIFIED HISTOLOGY INDOLENT
     Dosage: DATE OF LAST DOSE PRIOR TO SAE: 26/NOV/2012.
     Route: 042
  2. OMEPRAZOLE. [Concomitant]
     Active Substance: OMEPRAZOLE
     Route: 065
     Dates: start: 20120301, end: 20140206
  3. ONDANSETRON [Concomitant]
     Active Substance: ONDANSETRON
     Route: 065
     Dates: start: 20121126, end: 20130419
  4. DEXAMETHASONE. [Concomitant]
     Active Substance: DEXAMETHASONE
     Route: 065
     Dates: start: 20130820, end: 20150121
  5. CLEXANE [Concomitant]
     Active Substance: ENOXAPARIN SODIUM
  6. PANTOPRAZOL [Concomitant]
     Active Substance: PANTOPRAZOLE SODIUM
     Route: 065
     Dates: start: 20141208, end: 20141210
  7. GRANULOKINE [Concomitant]
     Active Substance: FILGRASTIM
     Indication: FEBRILE NEUTROPENIA
     Route: 065
     Dates: start: 20150319, end: 20150324
  8. DIPIRONA [Concomitant]
     Active Substance: METAMIZOLE
     Route: 065
     Dates: start: 20141214, end: 20141214
  9. AMBISOME [Concomitant]
     Active Substance: AMPHOTERICIN B
     Indication: PNEUMONIA
     Route: 065
     Dates: start: 20150404, end: 20150417
  10. ALLOPURINOL. [Concomitant]
     Active Substance: ALLOPURINOL
     Route: 065
     Dates: start: 20120301, end: 20130619
  11. PARACETAMOL [Concomitant]
     Active Substance: ACETAMINOPHEN
     Route: 065
     Dates: start: 20121126, end: 20121226
  12. KEFAZOL [Concomitant]
     Active Substance: CEFAZOLIN SODIUM
     Route: 065
     Dates: start: 20141213, end: 20141213
  13. KEFAZOL [Concomitant]
     Active Substance: CEFAZOLIN SODIUM
     Route: 065
     Dates: start: 20141214, end: 20141214
  14. FILGRASTIM [Concomitant]
     Active Substance: FILGRASTIM
     Indication: NEUTROPENIA
     Route: 065
     Dates: start: 20130107, end: 20130110
  15. FILGRASTIM [Concomitant]
     Active Substance: FILGRASTIM
     Route: 065
     Dates: start: 20130131, end: 20130201
  16. FILGRASTIM [Concomitant]
     Active Substance: FILGRASTIM
     Route: 065
     Dates: start: 20130328, end: 20130401
  17. BUSCOPAN COMPOSTO [Concomitant]
     Indication: PANCREATITIS ACUTE
     Route: 065
     Dates: start: 20141207, end: 20141207
  18. DIPIRONA [Concomitant]
     Active Substance: METAMIZOLE
     Route: 065
     Dates: start: 20141212, end: 20141212
  19. DIPIRONA [Concomitant]
     Active Substance: METAMIZOLE
     Route: 065
     Dates: start: 20141208, end: 20141208
  20. FILGRASTIM [Concomitant]
     Active Substance: FILGRASTIM
     Route: 065
     Dates: start: 20130426, end: 20130430
  21. AZITHROMYCIN ANHYDROUS. [Concomitant]
     Active Substance: AZITHROMYCIN ANHYDROUS
     Indication: BRONCHITIS
     Route: 065
     Dates: start: 20140124, end: 20140130
  22. TRAMAL [Concomitant]
     Active Substance: TRAMADOL
     Indication: PANCREATITIS ACUTE
     Route: 065
     Dates: start: 20141207, end: 20141207
  23. BUSCOPAN COMPOSTO [Concomitant]
     Route: 065
     Dates: start: 20140710, end: 20140710
  24. NUBAIN [Concomitant]
     Active Substance: NALBUPHINE HYDROCHLORIDE
     Route: 065
     Dates: start: 20141214, end: 20141214
  25. ZOFRAN [Concomitant]
     Active Substance: ONDANSETRON HYDROCHLORIDE
     Route: 065
     Dates: start: 20141214, end: 20141214
  26. MERONEM [Concomitant]
     Active Substance: MEROPENEM
     Indication: PNEUMONIA
     Route: 065
     Dates: start: 20150326, end: 20150422
  27. LIQUEMINE [Concomitant]
     Active Substance: HEPARIN SODIUM
     Route: 065
     Dates: start: 20141212, end: 20141214
  28. FILGRASTIM [Concomitant]
     Active Substance: FILGRASTIM
     Route: 065
     Dates: start: 20130228, end: 20130304
  29. CEFEPIME [Concomitant]
     Active Substance: CEFEPIME HYDROCHLORIDE
     Indication: FEBRILE NEUTROPENIA
     Route: 065
     Dates: start: 20140310, end: 20140313
  30. NUBAIN [Concomitant]
     Active Substance: NALBUPHINE HYDROCHLORIDE
     Indication: PANCREATITIS ACUTE
     Route: 065
     Dates: start: 20141212, end: 20141212
  31. ATENOLOL. [Concomitant]
     Active Substance: ATENOLOL
     Indication: HYPERTENSION
     Route: 065
     Dates: start: 20090101
  32. PARACETAMOL [Concomitant]
     Active Substance: ACETAMINOPHEN
     Route: 065
     Dates: start: 20130122, end: 20150121
  33. FILGRASTIM [Concomitant]
     Active Substance: FILGRASTIM
     Route: 065
     Dates: start: 20130204, end: 20130206
  34. GRANULOKINE [Concomitant]
     Active Substance: FILGRASTIM
     Route: 065
     Dates: start: 20130428, end: 20130430
  35. NUBAIN [Concomitant]
     Active Substance: NALBUPHINE HYDROCHLORIDE
     Route: 065
     Dates: start: 20141213, end: 20141213
  36. TAZOCIN [Concomitant]
     Active Substance: PIPERACILLIN SODIUM\TAZOBACTAM SODIUM
     Indication: PNEUMONIA
     Route: 065
     Dates: start: 20150319, end: 20150321
  37. FLEBOCORTID [Concomitant]
     Active Substance: HYDROCORTISONE SODIUM SUCCINATE
     Indication: PNEUMONIA
     Route: 065
     Dates: start: 20150319, end: 20150410
  38. BACTRIM [Concomitant]
     Active Substance: SULFAMETHOXAZOLE\TRIMETHOPRIM
     Dosage: 1 TABLET.
     Route: 065
     Dates: start: 20150319, end: 20150319
  39. PANTOPRAZOL [Concomitant]
     Active Substance: PANTOPRAZOLE SODIUM
     Route: 065
     Dates: start: 20141207, end: 20141207
  40. FILGRASTIM [Concomitant]
     Active Substance: FILGRASTIM
     Route: 065
     Dates: start: 20140311, end: 20140313
  41. CEPHALEXIN. [Concomitant]
     Active Substance: CEPHALEXIN
     Indication: FOLLICULITIS
     Route: 065
     Dates: start: 20140114, end: 20140121
  42. DIPIRONA [Concomitant]
     Active Substance: METAMIZOLE
     Indication: PANCREATITIS ACUTE
     Route: 065
     Dates: start: 20141210, end: 20141210
  43. DIPIRONA [Concomitant]
     Active Substance: METAMIZOLE
     Route: 065
     Dates: start: 20141211, end: 20141211
  44. CEFTRIAXONE. [Concomitant]
     Active Substance: CEFTRIAXONE
     Indication: PNEUMONIA
     Route: 065
     Dates: start: 20150319, end: 20150321
  45. CLINDAMICIN [Concomitant]
     Indication: PNEUMONIA
     Route: 065
     Dates: start: 20150320, end: 20150321
  46. BUSCOPAN [Concomitant]
     Active Substance: BUTYLSCOPOLAMINE BROMIDE
     Indication: BILIARY COLIC
     Dosage: 1 AMP.
     Route: 065
     Dates: start: 20140710, end: 20140710
  47. ZOFRAN [Concomitant]
     Active Substance: ONDANSETRON HYDROCHLORIDE
     Indication: PANCREATITIS ACUTE
     Route: 065
     Dates: start: 20141212, end: 20141213
  48. VANCOMICINA [Concomitant]
     Active Substance: VANCOMYCIN
     Indication: PNEUMONIA
     Route: 065
     Dates: start: 20150321, end: 20150323
  49. TARGOCID [Concomitant]
     Active Substance: TEICOPLANIN
     Indication: PNEUMONIA
     Route: 065
     Dates: start: 20150325, end: 20150414
  50. BACTRIM [Concomitant]
     Active Substance: SULFAMETHOXAZOLE\TRIMETHOPRIM
     Route: 048
     Dates: start: 20120301
  51. ACYCLOVIR. [Concomitant]
     Active Substance: ACYCLOVIR
     Route: 065
     Dates: start: 20130104, end: 20140206
  52. PANTOPRAZOL [Concomitant]
     Active Substance: PANTOPRAZOLE SODIUM
     Route: 065
     Dates: start: 20141212, end: 20141214
  53. KEFAZOL [Concomitant]
     Active Substance: CEFAZOLIN SODIUM
     Route: 065
     Dates: start: 20141212, end: 20141212
  54. LIQUEMINE [Concomitant]
     Active Substance: HEPARIN SODIUM
     Route: 065
     Dates: start: 20141215, end: 20141215
  55. NIMESULIDE [Concomitant]
     Active Substance: NIMESULIDE
     Route: 065
     Dates: start: 20130408, end: 20130408
  56. TAZOCIN [Concomitant]
     Active Substance: PIPERACILLIN SODIUM\TAZOBACTAM SODIUM
     Route: 065
     Dates: start: 20150322, end: 20150322
  57. TAZOCIN [Concomitant]
     Active Substance: PIPERACILLIN SODIUM\TAZOBACTAM SODIUM
     Route: 065
     Dates: start: 20150323

REACTIONS (1)
  - Lymphoma [Recovered/Resolved]

NARRATIVE: CASE EVENT DATE: 20121126
